FAERS Safety Report 10349515 (Version 2)
Quarter: 2014Q3

REPORT INFORMATION
  Report Type: Spontaneous
  Country: US (occurrence: US)
  Receive Date: 20140730
  Receipt Date: 20140903
  Transmission Date: 20150326
  Serious: Yes (Other)
  Sender: FDA-Public Use
  Company Number: US-AMGEN-USASP2014056037

PATIENT
  Age: 62 Year
  Sex: Female
  Weight: 98 kg

DRUGS (7)
  1. WARFARIN [Concomitant]
     Active Substance: WARFARIN
  2. FLUOXETINE [Concomitant]
     Active Substance: FLUOXETINE\FLUOXETINE HYDROCHLORIDE
  3. PROLIA [Suspect]
     Active Substance: DENOSUMAB
     Indication: OSTEOPOROSIS
     Dosage: 60 MG, UNK
     Route: 058
     Dates: start: 20130715
  4. PROLIA [Suspect]
     Active Substance: DENOSUMAB
     Indication: BONE DENSITY DECREASED
  5. TRAMADOL [Concomitant]
     Active Substance: TRAMADOL
     Indication: BONE PAIN
  6. DILTIAZEM [Concomitant]
     Active Substance: DILTIAZEM
  7. OMEPRAZOLE. [Concomitant]
     Active Substance: OMEPRAZOLE

REACTIONS (3)
  - Breast cancer [Not Recovered/Not Resolved]
  - Arthralgia [Unknown]
  - Bone pain [Unknown]

NARRATIVE: CASE EVENT DATE: 20140422
